FAERS Safety Report 25777741 (Version 1)
Quarter: 2025Q3

REPORT INFORMATION
  Report Type: Spontaneous
  Country: CA (occurrence: CA)
  Receive Date: 20250909
  Receipt Date: 20250909
  Transmission Date: 20251021
  Serious: Yes (Life-Threatening, Hospitalization, Congenital Anomaly)
  Sender: ROCHE
  Company Number: CA-ROCHE-10000382749

PATIENT
  Age: 60 Year
  Sex: Female
  Weight: 97 kg

DRUGS (3)
  1. ACTEMRA [Suspect]
     Active Substance: TOCILIZUMAB
     Indication: Rheumatoid arthritis
     Route: 042
  2. ACTEMRA [Suspect]
     Active Substance: TOCILIZUMAB
     Indication: Rheumatoid arthritis
     Route: 058
  3. RITUXIMAB [Suspect]
     Active Substance: RITUXIMAB
     Indication: Rheumatoid arthritis
     Route: 042

REACTIONS (34)
  - Abdominal pain [Not Recovered/Not Resolved]
  - Alopecia [Not Recovered/Not Resolved]
  - Bloody discharge [Not Recovered/Not Resolved]
  - Dizziness [Not Recovered/Not Resolved]
  - Drug hypersensitivity [Not Recovered/Not Resolved]
  - Drug ineffective [Not Recovered/Not Resolved]
  - Drug intolerance [Not Recovered/Not Resolved]
  - Duodenal ulcer perforation [Not Recovered/Not Resolved]
  - Dyspnoea [Not Recovered/Not Resolved]
  - Fatigue [Not Recovered/Not Resolved]
  - Helicobacter infection [Not Recovered/Not Resolved]
  - Hypertension [Not Recovered/Not Resolved]
  - Hypoaesthesia [Not Recovered/Not Resolved]
  - Infection [Not Recovered/Not Resolved]
  - International normalised ratio fluctuation [Not Recovered/Not Resolved]
  - Iron deficiency [Not Recovered/Not Resolved]
  - Irritable bowel syndrome [Not Recovered/Not Resolved]
  - Liver injury [Not Recovered/Not Resolved]
  - Lower respiratory tract infection [Not Recovered/Not Resolved]
  - Lupus vulgaris [Not Recovered/Not Resolved]
  - Lyme disease [Not Recovered/Not Resolved]
  - Malaise [Not Recovered/Not Resolved]
  - Nausea [Not Recovered/Not Resolved]
  - Pemphigus [Not Recovered/Not Resolved]
  - Platelet count increased [Not Recovered/Not Resolved]
  - Pericarditis [Not Recovered/Not Resolved]
  - Rheumatic fever [Not Recovered/Not Resolved]
  - Secretion discharge [Not Recovered/Not Resolved]
  - Staphylococcal infection [Not Recovered/Not Resolved]
  - Systemic lupus erythematosus [Not Recovered/Not Resolved]
  - Type 2 diabetes mellitus [Not Recovered/Not Resolved]
  - Ulcer haemorrhage [Not Recovered/Not Resolved]
  - Vomiting [Not Recovered/Not Resolved]
  - Wound [Not Recovered/Not Resolved]
